FAERS Safety Report 5735109-3 (Version None)
Quarter: 2008Q2

REPORT INFORMATION
  Report Type: 
  Country: None (occurrence: None)
  Receive Date: 20080512
  Receipt Date: 20080502
  Transmission Date: 20081010
  Serious: Yes (Other)
  Sender: FDA-Public Use
  Company Number: US-ABBOTT-08P-163-0449452-00

PATIENT
  Sex: Male
  Weight: 88.53 kg

DRUGS (1)
  1. HUMIRA [Suspect]
     Indication: RHEUMATOID ARTHRITIS
     Route: 058
     Dates: start: 20050101, end: 20061201

REACTIONS (9)
  - ARTHRALGIA [None]
  - CALCINOSIS [None]
  - DEVICE FAILURE [None]
  - JOINT SWELLING [None]
  - PYREXIA [None]
  - STAPHYLOCOCCAL INFECTION [None]
  - STREPTOCOCCAL INFECTION [None]
  - THROMBOSIS [None]
  - THYROID DISORDER [None]
